FAERS Safety Report 18017003 (Version 2)
Quarter: 2020Q3

REPORT INFORMATION
  Report Type: Spontaneous
  Country: JP (occurrence: JP)
  Receive Date: 20200714
  Receipt Date: 20200827
  Transmission Date: 20201103
  Serious: Yes (Life-Threatening, Other)
  Sender: FDA-Public Use
  Company Number: JP-AMGEN-JPNSP2020112139

PATIENT
  Age: 70 Year
  Sex: Female
  Weight: 70.6 kg

DRUGS (9)
  1. BISOPROLOL FUMARATE YOSHINDO [Concomitant]
     Dosage: 5 MG, EVERYDAY
     Route: 048
     Dates: start: 20161222
  2. AMLODIPINE [Concomitant]
     Active Substance: AMLODIPINE BESYLATE
     Dosage: 5 MG, EVERYDAY
     Route: 048
     Dates: start: 20200120
  3. DEXART [Concomitant]
     Active Substance: DEXAMETHASONE SODIUM PHOSPHATE
     Indication: PLASMA CELL MYELOMA
     Dosage: 33 MG
     Route: 041
     Dates: start: 20200625
  4. ENALAPRIL MALEATE. [Concomitant]
     Active Substance: ENALAPRIL MALEATE
     Dosage: 5 MG, Q12H
     Route: 048
     Dates: start: 20170518
  5. KYPROLIS [Suspect]
     Active Substance: CARFILZOMIB
     Dosage: 110 MILLIGRAM
     Route: 041
     Dates: start: 20200702, end: 20200702
  6. DEXAMETHASONE. [Concomitant]
     Active Substance: DEXAMETHASONE
     Dosage: UNK
     Route: 065
  7. ROZEREM [Concomitant]
     Active Substance: RAMELTEON
     Dosage: 8 MG, EVERYDAY
     Route: 048
     Dates: start: 20190418
  8. KYPROLIS [Suspect]
     Active Substance: CARFILZOMIB
     Indication: PLASMA CELL MYELOMA
     Dosage: 30 MILLIGRAM, QWK
     Route: 041
     Dates: start: 20200625, end: 20200625
  9. FAMOTIDINE OD ME [Concomitant]
     Indication: PROPHYLAXIS
     Dosage: 20 MG, EVERYDAY
     Route: 048
     Dates: start: 20140904

REACTIONS (1)
  - Anaphylactic shock [Recovered/Resolved]

NARRATIVE: CASE EVENT DATE: 20200702
